FAERS Safety Report 4388816-1 (Version None)
Quarter: 2004Q2

REPORT INFORMATION
  Report Type: 
  Country: None (occurrence: None)
  Receive Date: 20040624
  Receipt Date: 20040617
  Transmission Date: 20050107
  Serious: Yes (Hospitalization)
  Sender: FDA-Public Use
  Company Number: 8238

PATIENT
  Age: 59 Year
  Sex: Female
  Weight: 77 kg

DRUGS (5)
  1. METHOTREXATE [Suspect]
     Indication: BREAST CANCER
     Dosage: 50 MG/M2 PER_CYCLE IV
     Route: 042
     Dates: start: 20040423
  2. FLUOROURACIL [Suspect]
     Indication: BREAST CANCER
     Dosage: 600 MG/M2 PER_CYCLE IV
     Route: 042
     Dates: start: 20040423
  3. EPIRUBICIN [Suspect]
     Indication: BREAST CANCER
     Dosage: 100 MG/M2 PER_CYCLE IV
     Route: 042
     Dates: start: 20040218
  4. CYCLOPHOSPHAMIDE [Suspect]
     Indication: BREAST CANCER
     Dosage: 750 MG/M2 PER_CYCLE IV
     Route: 042
     Dates: start: 20040423
  5. VERAPAMIL [Concomitant]

REACTIONS (2)
  - LEUKOPENIA [None]
  - NEUTROPENIC SEPSIS [None]
